FAERS Safety Report 5625525-2 (Version None)
Quarter: 2008Q1

REPORT INFORMATION
  Report Type: 
  Country: None (occurrence: None)
  Receive Date: 20080211
  Receipt Date: 20080211
  Transmission Date: 20080703
  Serious: No
  Sender: FDA-Public Use
  Company Number: None

PATIENT
  Sex: Female
  Weight: 57.1532 kg

DRUGS (1)
  1. CHANTIX [Suspect]
     Indication: SMOKING CESSATION THERAPY
     Dosage: 1 PILL  TWICE A DAY  PO
     Route: 048

REACTIONS (5)
  - CONSTIPATION [None]
  - DEPRESSION [None]
  - DIARRHOEA [None]
  - NAUSEA [None]
  - VOMITING [None]
